FAERS Safety Report 9116441 (Version 2)
Quarter: 2013Q2

REPORT INFORMATION
  Report Type: Report from Study
  Country: JP (occurrence: JP)
  Receive Date: 20130225
  Receipt Date: 20130426
  Transmission Date: 20140414
  Serious: Yes (Hospitalization)
  Sender: FDA-Public Use
  Company Number: JP-009507513-1302JPN008645

PATIENT
  Age: 50 Year
  Sex: Male

DRUGS (5)
  1. ISENTRESS TABLETS 400MG [Suspect]
     Indication: HIV INFECTION
     Dosage: 800 MG, QD
     Route: 048
     Dates: start: 20110111
  2. TRUVADA [Concomitant]
     Indication: HIV INFECTION
     Dosage: 1 DF, QD
     Route: 048
     Dates: start: 20080909
  3. LENDORMIN [Concomitant]
     Indication: INSOMNIA
     Dosage: 0.25 MG, QD
     Route: 048
  4. MICARDIS [Concomitant]
     Indication: HYPERTENSION
     Dosage: 40 MG, QD
     Route: 048
     Dates: start: 20110405, end: 20111202
  5. MICAMLO [Concomitant]
     Indication: HYPERTENSION
     Dosage: 1 DF, QD
     Route: 048
     Dates: start: 20111203

REACTIONS (1)
  - Large intestine polyp [Recovering/Resolving]
